FAERS Safety Report 6954012-4 (Version None)
Quarter: 2010Q3

REPORT INFORMATION
  Report Type: 
  Country: None (occurrence: None)
  Receive Date: 20100829
  Receipt Date: 20100701
  Transmission Date: 20110219
  Serious: No
  Sender: FDA-Public Use
  Company Number: US-ABBOTT-10P-163-0655137-00

PATIENT
  Sex: Male
  Weight: 110.32 kg

DRUGS (6)
  1. NIASPAN [Suspect]
     Indication: HYPERLIPIDAEMIA
     Dosage: NIGHTLY
     Route: 048
     Dates: start: 20100625, end: 20100628
  2. BISOPROLOL [Concomitant]
     Indication: PRODUCT USED FOR UNKNOWN INDICATION
     Dosage: TAKEN AS DIRECTED
  3. METFORMIN [Concomitant]
     Indication: PRODUCT USED FOR UNKNOWN INDICATION
     Dosage: TAKEN AS DIRECTED
  4. DILANTIN [Concomitant]
     Indication: PRODUCT USED FOR UNKNOWN INDICATION
     Dosage: TAKEN AS DIRECTED
  5. GENERIC PRILOSEC [Concomitant]
     Indication: PRODUCT USED FOR UNKNOWN INDICATION
     Dosage: TAKEN AS DIRECTED
  6. CHOLESTYRAMINE [Concomitant]
     Indication: PRODUCT USED FOR UNKNOWN INDICATION
     Dosage: TAKEN AS DIRECTED
     Dates: start: 20100628

REACTIONS (2)
  - FLUSHING [None]
  - SKIN BURNING SENSATION [None]
